FAERS Safety Report 15074350 (Version 1)
Quarter: 2018Q2

REPORT INFORMATION
  Report Type: Spontaneous
  Country: GB (occurrence: GB)
  Receive Date: 20180627
  Receipt Date: 20180627
  Transmission Date: 20180711
  Serious: Yes (Other)
  Sender: FDA-Public Use
  Company Number: GB-TEVA-2018-GB-913082

PATIENT
  Age: 77 Year
  Sex: Female
  Weight: 69.9 kg

DRUGS (39)
  1. DOXYCYCLINE. [Suspect]
     Active Substance: DOXYCYCLINE
     Indication: PNEUMONIA
     Dosage: 200 MILLIGRAM DAILY;
     Route: 048
     Dates: start: 20180510, end: 20180510
  2. LANSOPRAZOLE. [Concomitant]
     Active Substance: LANSOPRAZOLE
     Dosage: 30 MILLIGRAM DAILY;
     Route: 048
     Dates: start: 20180212
  3. SALBUTAMOL [Concomitant]
     Active Substance: ALBUTEROL
     Dosage: 800 MICROGRAM DAILY;
     Route: 055
     Dates: start: 20180415, end: 20180430
  4. PREDNISOLONE. [Concomitant]
     Active Substance: PREDNISOLONE
     Dosage: 30 MILLIGRAM DAILY; (MORNING)
     Route: 048
     Dates: start: 20180503, end: 20180508
  5. ALFACALCIDOL [Concomitant]
     Active Substance: ALFACALCIDOL
     Dosage: 1 MICROGRAM DAILY;
     Route: 048
     Dates: start: 20180417
  6. BUMETANIDE. [Concomitant]
     Active Substance: BUMETANIDE
     Dosage: 1 MILLIGRAM DAILY; (MORNING)
     Route: 048
     Dates: start: 20180212
  7. SALBUTAMOL [Concomitant]
     Active Substance: ALBUTEROL
     Dosage: 80 MILLIGRAM DAILY;
     Route: 055
     Dates: start: 20180427
  8. MAGNESIUM SULFATE. [Concomitant]
     Active Substance: MAGNESIUM SULFATE
     Route: 042
     Dates: start: 20180424
  9. SALBUTAMOL [Concomitant]
     Active Substance: ALBUTEROL
     Route: 055
     Dates: start: 20180212, end: 20180425
  10. IPRATROPIUM [Concomitant]
     Active Substance: IPRATROPIUM
     Dosage: 1500 MICROGRAM DAILY;
     Route: 055
     Dates: start: 20180501, end: 20180508
  11. FUROSEMIDE. [Concomitant]
     Active Substance: FUROSEMIDE
     Dosage: 40 MILLIGRAM DAILY; (MORNING)
     Route: 048
     Dates: start: 20180509
  12. NEOMYCIN. [Concomitant]
     Active Substance: NEOMYCIN
     Dosage: 3 DOSAGE FORMS DAILY;
     Route: 045
     Dates: start: 20180422, end: 20180502
  13. UMECLIDINIUM [Concomitant]
     Active Substance: UMECLIDINIUM BROMIDE
     Dosage: 55 MILLIGRAM DAILY;
     Route: 055
     Dates: start: 20180212
  14. ONDANSETRON [Concomitant]
     Active Substance: ONDANSETRON
     Dosage: 12 MILLIGRAM DAILY;
     Route: 048
     Dates: start: 20180415
  15. OXYGEN. [Concomitant]
     Active Substance: OXYGEN
     Dosage: SEE ASSESSMENTS VIEW OR POWERFORM FOR PRESCRIPTION AND MONITORING DETAILS
     Route: 065
     Dates: start: 20180416, end: 20180416
  16. GLYCERYL TRINITRATE [Concomitant]
     Active Substance: NITROGLYCERIN
     Dosage: 2 SPRAYS EVERY 5 MINUTES
     Route: 060
     Dates: start: 20180415
  17. CARBOCISTEINE [Concomitant]
     Active Substance: CARBOCYSTEINE
     Dosage: 1125 MILLIGRAM DAILY;
     Route: 048
     Dates: start: 20180507
  18. TRANEXAMIC ACID. [Concomitant]
     Active Substance: TRANEXAMIC ACID
     Dosage: 3 GRAM DAILY;
     Route: 048
     Dates: start: 20180423, end: 20180505
  19. CIPROFLOXACIN. [Concomitant]
     Active Substance: CIPROFLOXACIN
     Dosage: 800 MILLIGRAM DAILY;
     Route: 042
     Dates: start: 20180504, end: 20180510
  20. SODIUM CHLORIDE. [Concomitant]
     Active Substance: SODIUM CHLORIDE
     Route: 055
     Dates: start: 20180427
  21. TEICOPLANIN [Concomitant]
     Active Substance: TEICOPLANIN
     Dosage: 800 MILLIGRAM DAILY;
     Dates: start: 20180504, end: 20180505
  22. GLYCERYL TRINITRATE [Concomitant]
     Active Substance: NITROGLYCERIN
     Dosage: 1 SPRAYS EVERY 5 MINUTES
     Route: 060
     Dates: start: 20180425
  23. CARVEDILOL. [Concomitant]
     Active Substance: CARVEDILOL
     Dosage: 12.5 MILLIGRAM DAILY;
     Route: 048
     Dates: start: 20180212
  24. LEVOTHYROXINE. [Concomitant]
     Active Substance: LEVOTHYROXINE
     Dosage: 100 MICROGRAM DAILY;
     Route: 048
     Dates: start: 20180425
  25. CYCLIZINE [Concomitant]
     Active Substance: CYCLIZINE
     Dosage: 150 MILLIGRAM DAILY;
     Dates: start: 20180416
  26. GAVISCON [Concomitant]
     Active Substance: ALUMINUM HYDROXIDE\MAGNESIUM CARBONATE
     Dosage: 40 ML DAILY;
     Route: 048
     Dates: start: 20180212
  27. CANDESARTAN. [Concomitant]
     Active Substance: CANDESARTAN
     Dosage: 2 MILLIGRAM DAILY;
     Route: 048
     Dates: start: 20180212
  28. PANTOPRAZOLE SODIUM. [Concomitant]
     Active Substance: PANTOPRAZOLE SODIUM
     Dosage: 40 MILLIGRAM DAILY;
     Route: 042
     Dates: start: 20180424, end: 20180426
  29. CHLORHEXIDINE HYDROCHLORIDE [Concomitant]
     Active Substance: CHLORHEXIDINE HYDROCHLORIDE
     Dosage: 3 DOSAGE FORMS DAILY;
     Route: 045
     Dates: start: 20180422, end: 20180502
  30. PARACETAMOL [Concomitant]
     Active Substance: ACETAMINOPHEN
     Dosage: 4 GRAM DAILY;
     Route: 048
     Dates: start: 20180212
  31. SODIUM CHLORIDE. [Concomitant]
     Active Substance: SODIUM CHLORIDE
     Dosage: 2000 ML DAILY;
     Route: 042
     Dates: start: 20180425, end: 20180427
  32. TRAMADOL. [Concomitant]
     Active Substance: TRAMADOL
     Dosage: 200 MICROGRAM DAILY;
     Route: 042
     Dates: start: 20180425
  33. CODEINE [Concomitant]
     Active Substance: CODEINE
     Dosage: 240 MILLIGRAM DAILY;
     Route: 048
     Dates: start: 20180415, end: 20180416
  34. LACTULOSE. [Concomitant]
     Active Substance: LACTULOSE
     Dosage: 30 ML DAILY;
     Route: 048
     Dates: start: 20180427
  35. MORPHINE [Concomitant]
     Active Substance: MORPHINE
     Dosage: 5-10 MG EVERY TWO HOURS
     Route: 048
     Dates: start: 20180425
  36. PREDNISOLONE. [Concomitant]
     Active Substance: PREDNISOLONE
     Dosage: 60 MILLIGRAM DAILY; (MORNING)
     Route: 048
     Dates: start: 20180416, end: 20180420
  37. SALBUTAMOL [Concomitant]
     Active Substance: ALBUTEROL
     Route: 055
     Dates: start: 20180510
  38. CODEINE [Concomitant]
     Active Substance: CODEINE
     Dosage: 120 MILLIGRAM DAILY;
     Route: 048
     Dates: start: 20180425
  39. TEICOPLANIN [Concomitant]
     Active Substance: TEICOPLANIN
     Dosage: 400 MILLIGRAM DAILY;
     Route: 042
     Dates: start: 20180506, end: 20180510

REACTIONS (2)
  - Malaise [Unknown]
  - Idiopathic intracranial hypertension [Recovering/Resolving]

NARRATIVE: CASE EVENT DATE: 20180510
